FAERS Safety Report 9749374 (Version 2)
Quarter: 2014Q1

REPORT INFORMATION
  Report Type: Spontaneous
  Country: US (occurrence: US)
  Receive Date: 20131212
  Receipt Date: 20140108
  Transmission Date: 20141002
  Serious: Yes (Death, Other)
  Sender: FDA-Public Use
  Company Number: US-B.I. PHARMACEUTICALS,INC./RIDGEFIELD-2013-BI-41594BP

PATIENT
  Age: 78 Year
  Sex: Female

DRUGS (7)
  1. COMBIVENT [Suspect]
     Indication: CHRONIC OBSTRUCTIVE PULMONARY DISEASE
     Dosage: STRENGTH: 20 MCG / 100 MCG; DAILY DOSE: 80 MCG / 400 MCG
     Route: 055
     Dates: start: 2013
  2. COMBIVENT [Suspect]
     Indication: CHRONIC OBSTRUCTIVE PULMONARY DISEASE
     Dosage: STRENGTH: 18 MCG / 103 MCG; DAILY DOSE: 144 MCG / 824 MCG
     Route: 055
     Dates: start: 2003, end: 2013
  3. MEDICATIONS FOR PAIN [Concomitant]
     Indication: PAIN
  4. MEDICATIONS FOR COPD [Concomitant]
     Indication: CHRONIC OBSTRUCTIVE PULMONARY DISEASE
  5. MEDICATIONS FOR HIGH CHOLESTEROL [Concomitant]
     Indication: BLOOD CHOLESTEROL INCREASED
  6. MEDICATIONS FOR HIGH BP [Concomitant]
     Indication: HYPERTENSION
  7. FORADIL [Concomitant]

REACTIONS (1)
  - Neoplasm malignant [Fatal]
